FAERS Safety Report 23503981 (Version 2)
Quarter: 2024Q2

REPORT INFORMATION
  Report Type: Spontaneous
  Country: US (occurrence: US)
  Receive Date: 20240209
  Receipt Date: 20240402
  Transmission Date: 20240716
  Serious: Yes (Hospitalization, Other)
  Sender: FDA-Public Use
  Company Number: US-NOVOPROD-1172553

PATIENT
  Age: 60 Year
  Sex: Female
  Weight: 108.39 kg

DRUGS (1)
  1. RYBELSUS [Suspect]
     Active Substance: SEMAGLUTIDE
     Indication: Type 2 diabetes mellitus
     Dosage: 14 MG
     Route: 048
     Dates: start: 20210722, end: 20231228

REACTIONS (4)
  - Acute myelomonocytic leukaemia [Unknown]
  - Jaundice [Not Recovered/Not Resolved]
  - Ulcer [Unknown]
  - Constipation [Unknown]
